FAERS Safety Report 26059145 (Version 2)
Quarter: 2025Q4

REPORT INFORMATION
  Report Type: Report from Study
  Country: CA (occurrence: CA)
  Receive Date: 20251118
  Receipt Date: 20251225
  Transmission Date: 20260118
  Serious: Yes (Other)
  Sender: ABBVIE
  Company Number: CA-ABBVIE-6552820

PATIENT
  Age: 34 Year
  Sex: Female

DRUGS (1)
  1. BOTOX [Suspect]
     Active Substance: ONABOTULINUMTOXINA
     Indication: Migraine
     Dosage: TIME INTERVAL: AS NECESSARY: 200 UNITS EVERY 3 MONTHS
     Route: 065
     Dates: start: 20190911, end: 20190911

REACTIONS (4)
  - Surgery [Recovered/Resolved]
  - Endotracheal intubation complication [Recovered/Resolved]
  - Syncope [Unknown]
  - Procedural pain [Unknown]

NARRATIVE: CASE EVENT DATE: 20250901
